FAERS Safety Report 16764853 (Version 3)
Quarter: 2019Q4

REPORT INFORMATION
  Report Type: Report from Study
  Country: US (occurrence: US)
  Receive Date: 20190903
  Receipt Date: 20191114
  Transmission Date: 20200122
  Serious: Yes (Hospitalization, Other)
  Sender: FDA-Public Use
  Company Number: US-BIOGEN-2019BI00780953

PATIENT
  Age: 22 Year
  Sex: Female
  Weight: 78.09 kg

DRUGS (9)
  1. NECON [Concomitant]
     Active Substance: ETHINYL ESTRADIOL\NORETHINDRONE
     Indication: PRODUCT USED FOR UNKNOWN INDICATION
     Dosage: 0.5MG/35MCG
     Route: 065
  2. ZANAFLEX [Concomitant]
     Active Substance: TIZANIDINE HYDROCHLORIDE
     Indication: MUSCLE SPASMS
     Dosage: TAKE 1-2 TABLETS
     Route: 048
  3. ADVIL [Concomitant]
     Active Substance: IBUPROFEN
     Indication: PRODUCT USED FOR UNKNOWN INDICATION
     Route: 065
  4. BACTROBAN [Concomitant]
     Active Substance: MUPIROCIN\MUPIROCIN CALCIUM
     Indication: PRODUCT USED FOR UNKNOWN INDICATION
     Route: 061
  5. ALBUTEROL. [Concomitant]
     Active Substance: ALBUTEROL
     Indication: WHEEZING
     Dosage: INHALE 2 PUFFS IN TO THE LUNGS EVERY 6 HOURS AS NEEDED
     Route: 065
  6. TYLENOL [Concomitant]
     Active Substance: ACETAMINOPHEN
     Indication: PRODUCT USED FOR UNKNOWN INDICATION
  7. ZOLOFT [Concomitant]
     Active Substance: SERTRALINE HYDROCHLORIDE
     Indication: ANXIETY
     Route: 065
  8. XANAX [Concomitant]
     Active Substance: ALPRAZOLAM
     Indication: ANXIETY
     Dosage: 0.5 TO 1 TABLET AS NEEDED
     Route: 048
  9. TYSABRI [Suspect]
     Active Substance: NATALIZUMAB
     Indication: MULTIPLE SCLEROSIS
     Dosage: INFUSED OVER 1 HOUR
     Route: 065
     Dates: start: 20181228, end: 20190718

REACTIONS (4)
  - Syncope [Not Recovered/Not Resolved]
  - Hepatotoxicity [Not Recovered/Not Resolved]
  - Multiple sclerosis [Unknown]
  - Orthostatic hypotension [Unknown]

NARRATIVE: CASE EVENT DATE: 20190718
